FAERS Safety Report 10888880 (Version 2)
Quarter: 2015Q2

REPORT INFORMATION
  Report Type: Report from Study
  Country: US (occurrence: US)
  Receive Date: 20150305
  Receipt Date: 20150611
  Transmission Date: 20150821
  Serious: Yes (Hospitalization, Other)
  Sender: FDA-Public Use
  Company Number: US-ASTRAZENECA-2012SE88716

PATIENT
  Age: 84 Year
  Sex: Female
  Weight: 92.5 kg

DRUGS (23)
  1. PAROXETINE [Concomitant]
     Active Substance: PAROXETINE\PAROXETINE HYDROCHLORIDE
     Indication: UP AND DOWN PHENOMENON
     Dosage: DAILY
     Route: 048
  2. WARFARIN [Concomitant]
     Active Substance: WARFARIN
     Indication: BLOOD DISORDER
  3. PREDNISONE. [Suspect]
     Active Substance: PREDNISONE
     Indication: CALCINOSIS
     Route: 048
  4. IPRATROPIUM ALBUTEROL [Concomitant]
     Active Substance: ALBUTEROL\IPRATROPIUM
     Indication: DYSPNOEA
     Route: 055
     Dates: start: 2014
  5. PREMARIN [Concomitant]
     Active Substance: ESTROGENS, CONJUGATED
     Route: 067
  6. COLACE [Concomitant]
     Active Substance: DOCUSATE SODIUM
     Dosage: BID
  7. SYNTHROID [Concomitant]
     Active Substance: LEVOTHYROXINE SODIUM
  8. CRESTOR [Suspect]
     Active Substance: ROSUVASTATIN CALCIUM
     Indication: PAIN IN EXTREMITY
     Route: 048
     Dates: start: 2011, end: 201502
  9. CRESTOR [Suspect]
     Active Substance: ROSUVASTATIN CALCIUM
     Indication: PAIN IN EXTREMITY
     Dosage: ROSUVASTATIN CALCIUM, 5 MG DAILY
     Route: 048
  10. GLARGINE [Concomitant]
     Indication: DIABETES MELLITUS
     Dosage: 60 DAILY
     Route: 058
  11. NITROFURANTOIN. [Concomitant]
     Active Substance: NITROFURANTOIN
     Indication: KIDNEY INFECTION
  12. CRESTOR [Suspect]
     Active Substance: ROSUVASTATIN CALCIUM
     Indication: MYALGIA
     Route: 048
     Dates: start: 2011, end: 201502
  13. VITAMIN D [Concomitant]
     Active Substance: CHOLECALCIFEROL
     Indication: SUPPLEMENTATION THERAPY
  14. TYLENOL [Concomitant]
     Active Substance: ACETAMINOPHEN
  15. FUROSEMIDE. [Concomitant]
     Active Substance: FUROSEMIDE
  16. IPRATROPIUM [Concomitant]
     Active Substance: IPRATROPIUM
     Dosage: 2 TWO TIMES A DAY
     Route: 045
     Dates: start: 201412
  17. CRESTOR [Suspect]
     Active Substance: ROSUVASTATIN CALCIUM
     Indication: MYALGIA
     Dosage: ROSUVASTATIN CALCIUM, 5 MG DAILY
     Route: 048
  18. PREDNISONE. [Suspect]
     Active Substance: PREDNISONE
     Indication: CALCINOSIS
     Route: 048
  19. TOPROL XL [Suspect]
     Active Substance: METOPROLOL SUCCINATE
     Route: 048
  20. LIPITOR [Suspect]
     Active Substance: ATORVASTATIN CALCIUM
     Route: 048
  21. WARFARIN [Concomitant]
     Active Substance: WARFARIN
     Indication: RENAL DISORDER
  22. COMBIVENT [Concomitant]
     Active Substance: ALBUTEROL SULFATE\IPRATROPIUM BROMIDE
     Dosage: BID
     Dates: start: 201305
  23. NORVASC [Concomitant]
     Active Substance: AMLODIPINE BESYLATE

REACTIONS (30)
  - Feeling cold [Unknown]
  - Malaise [Unknown]
  - Depression [Unknown]
  - Drug dose omission [Not Recovered/Not Resolved]
  - Tremor [Unknown]
  - Swelling [Unknown]
  - Calcinosis [Unknown]
  - Gait disturbance [Recovering/Resolving]
  - Pyrexia [Unknown]
  - Product use issue [Not Recovered/Not Resolved]
  - Body height decreased [Not Recovered/Not Resolved]
  - Gait disturbance [Unknown]
  - Memory impairment [Not Recovered/Not Resolved]
  - Depressed mood [Unknown]
  - Intentional product misuse [Unknown]
  - Heart rate irregular [Recovered/Resolved]
  - Muscle spasms [Unknown]
  - Hypoacusis [Unknown]
  - Fat tissue increased [Unknown]
  - Balance disorder [Not Recovered/Not Resolved]
  - Limb discomfort [Not Recovered/Not Resolved]
  - Malaise [Unknown]
  - Cough [Not Recovered/Not Resolved]
  - Kidney infection [Recovered/Resolved]
  - Diabetes mellitus [Not Recovered/Not Resolved]
  - Pain in extremity [Not Recovered/Not Resolved]
  - Discomfort [Not Recovered/Not Resolved]
  - Asthenia [Recovering/Resolving]
  - Weight increased [Unknown]
  - Malaise [Recovered/Resolved]

NARRATIVE: CASE EVENT DATE: 2011
